FAERS Safety Report 4903312-8 (Version None)
Quarter: 2006Q1

REPORT INFORMATION
  Report Type: 
  Country: None (occurrence: None)
  Receive Date: 20060203
  Receipt Date: 20060203
  Transmission Date: 20060701
  Serious: No
  Sender: FDA-Public Use
  Company Number: None

PATIENT
  Age: 11 Year
  Sex: Female

DRUGS (1)
  1. STRATTERA [Suspect]
     Indication: ATTENTION DEFICIT/HYPERACTIVITY DISORDER
     Dates: start: 20040520, end: 20040801

REACTIONS (16)
  - ANTINUCLEAR ANTIBODY POSITIVE [None]
  - ARTHRALGIA [None]
  - AUTOIMMUNE HEPATITIS [None]
  - BIOPSY LIVER ABNORMAL [None]
  - BLOOD IMMUNOGLOBULIN G INCREASED [None]
  - CHRONIC HEPATITIS [None]
  - COAGULOPATHY [None]
  - DECREASED ACTIVITY [None]
  - HEPATIC FIBROSIS [None]
  - HEPATITIS ACUTE [None]
  - HEPATOSPLENOMEGALY [None]
  - PROTHROMBIN TIME PROLONGED [None]
  - PYREXIA [None]
  - RED BLOOD CELL SEDIMENTATION RATE INCREASED [None]
  - SMOOTH MUSCLE ANTIBODY POSITIVE [None]
  - WEIGHT DECREASED [None]
